FAERS Safety Report 25958969 (Version 9)
Quarter: 2025Q4

REPORT INFORMATION
  Report Type: Report from Study
  Country: EU (occurrence: EU)
  Receive Date: 20251025
  Receipt Date: 20251221
  Transmission Date: 20260117
  Serious: Yes (Hospitalization, Other)
  Sender: ABBVIE
  Company Number: EU-ABBVIE-6515197

PATIENT
  Age: 66 Year
  Sex: Male

DRUGS (15)
  1. CARBIDOPA\LEVODOPA [Suspect]
     Active Substance: CARBIDOPA\LEVODOPA
     Indication: Parkinson^s disease
     Dosage: FREQUENCY - CONTINUOUS, MEDICATION ON HOLD
     Route: 050
     Dates: start: 20220530, end: 2025
  2. CARBIDOPA\LEVODOPA [Suspect]
     Active Substance: CARBIDOPA\LEVODOPA
     Route: 050
     Dates: start: 20220322
  3. CARBIDOPA\LEVODOPA [Suspect]
     Active Substance: CARBIDOPA\LEVODOPA
     Dosage: 1 CASSETTE?FREQUENCY: CONTINUOUS
     Route: 050
     Dates: start: 20251113, end: 2025
  4. CARBIDOPA\LEVODOPA [Suspect]
     Active Substance: CARBIDOPA\LEVODOPA
     Dosage: 1 CASSETTE?FREQUENCY: CONTINUOUS
     Route: 050
     Dates: start: 20251215
  5. LOSARTAN [Concomitant]
     Active Substance: LOSARTAN
     Indication: Product used for unknown indication
  6. RASAGILINE [Concomitant]
     Active Substance: RASAGILINE
     Indication: Product used for unknown indication
  7. ROSUVASTATIN [Concomitant]
     Active Substance: ROSUVASTATIN
     Indication: Product used for unknown indication
     Dosage: NIGHT
  8. RIVOTRIL [Concomitant]
     Active Substance: CLONAZEPAM
     Indication: Product used for unknown indication
     Dosage: NIGHT
  9. SINEMET [Concomitant]
     Active Substance: CARBIDOPA\LEVODOPA
     Indication: Product used for unknown indication
     Dosage: 8 AM,10.30,13.30,16.30,19.30, AS PER PRESCRIPTION
  10. VITAMIN D [Concomitant]
     Active Substance: VITAMIN D NOS
     Indication: Product used for unknown indication
     Dosage: 12.5 MG
  11. CARBOMER [Concomitant]
     Active Substance: CARBOMER
     Indication: Product used for unknown indication
  12. OMEPRAZOLE [Concomitant]
     Active Substance: OMEPRAZOLE
     Indication: Product used for unknown indication
  13. LECALPIN [Concomitant]
     Indication: Product used for unknown indication
  14. PRAMIPEXOLE [Concomitant]
     Active Substance: PRAMIPEXOLE
     Indication: Product used for unknown indication
     Dosage: 1.05 MG
  15. SOLIFENACIN\TAMSULOSIN [Concomitant]
     Active Substance: SOLIFENACIN\TAMSULOSIN
     Indication: Product used for unknown indication
     Dosage: NIGHT

REACTIONS (13)
  - Joint dislocation [Recovering/Resolving]
  - Stoma site erythema [Not Recovered/Not Resolved]
  - Freezing phenomenon [Unknown]
  - Fall [Recovering/Resolving]
  - Agitation [Not Recovered/Not Resolved]
  - Hypotension [Unknown]
  - Device dislocation [Recovered/Resolved]
  - Device dislocation [Recovered/Resolved]
  - Dyskinesia [Not Recovered/Not Resolved]
  - Skin reaction [Not Recovered/Not Resolved]
  - Stoma site discharge [Not Recovered/Not Resolved]
  - Stoma site hypergranulation [Not Recovered/Not Resolved]
  - Somnolence [Not Recovered/Not Resolved]

NARRATIVE: CASE EVENT DATE: 20251016
